FAERS Safety Report 23330666 (Version 1)
Quarter: 2023Q4

REPORT INFORMATION
  Report Type: Spontaneous
  Country: RO (occurrence: RO)
  Receive Date: 20231222
  Receipt Date: 20231222
  Transmission Date: 20240109
  Serious: Yes (Death, Other)
  Sender: FDA-Public Use
  Company Number: RO-CELLTRION INC.-2023RO024007

PATIENT

DRUGS (2)
  1. BEVACIZUMAB [Suspect]
     Active Substance: BEVACIZUMAB
     Indication: Hepatic cancer
     Dosage: 15 MILLIGRAM/KILOGRAM, EVERY 3 WEEKS
     Route: 065
  2. ATEZOLIZUMAB [Suspect]
     Active Substance: ATEZOLIZUMAB
     Indication: Hepatic cancer
     Dosage: 1200 MILLIGRAM
     Route: 065

REACTIONS (6)
  - Thrombotic stroke [Fatal]
  - Disease progression [Unknown]
  - Hemiparesis [Unknown]
  - Speech disorder [Unknown]
  - Arthralgia [Unknown]
  - Intentional product use issue [Unknown]

NARRATIVE: CASE EVENT DATE: 20221101
